FAERS Safety Report 19475281 (Version 1)
Quarter: 2021Q2

REPORT INFORMATION
  Report Type: Spontaneous
  Country: None (occurrence: US)
  Receive Date: 20210629
  Receipt Date: 20210629
  Transmission Date: 20210717
  Serious: Yes (Other)
  Sender: FDA-Public Use
  Company Number: US-FRESENIUS KABI-FK202106619

PATIENT
  Age: 48 Year
  Sex: Female

DRUGS (6)
  1. CHORIONIC GONADOTROPIN [Suspect]
     Active Substance: CHORIOGONADOTROPIN ALFA
     Indication: IN VITRO FERTILISATION
     Dosage: 10,000 UNITS
     Route: 065
  2. MENOTROPHIN [Suspect]
     Active Substance: MENOTROPINS
     Indication: IN VITRO FERTILISATION
     Route: 065
  3. UROFOLLITROPIN [Suspect]
     Active Substance: UROFOLLITROPIN
     Indication: IN VITRO FERTILISATION
     Route: 065
  4. PROGESTERONE INJECTION USP [Suspect]
     Active Substance: PROGESTERONE
     Indication: IN VITRO FERTILISATION
     Route: 030
  5. LEUPRORELIN [Suspect]
     Active Substance: LEUPROLIDE ACETATE
     Indication: IN VITRO FERTILISATION
     Route: 030
  6. ESTRADIOL. [Suspect]
     Active Substance: ESTRADIOL
     Indication: IN VITRO FERTILISATION
     Route: 065

REACTIONS (1)
  - Placenta accreta [Recovered/Resolved]
